FAERS Safety Report 24285123 (Version 1)
Quarter: 2024Q3

REPORT INFORMATION
  Report Type: Spontaneous
  Country: DE (occurrence: DE)
  Receive Date: 20240905
  Receipt Date: 20240905
  Transmission Date: 20241017
  Serious: Yes (Other)
  Sender: ALKEM
  Company Number: None

PATIENT
  Age: 87 Year
  Sex: Female
  Weight: 78 kg

DRUGS (2)
  1. PREGABALIN [Suspect]
     Active Substance: PREGABALIN
     Indication: Pain
     Dosage: 25 MILLIGRAM, QD (EVERY 1 DAY)
     Route: 048
     Dates: end: 20230921
  2. PREGABALIN [Suspect]
     Active Substance: PREGABALIN
     Dosage: 75 MILLIGRAM, QD (EVERY 1 DAY)
     Route: 048
     Dates: start: 20230922, end: 20230926

REACTIONS (7)
  - Loss of consciousness [Recovering/Resolving]
  - Bedridden [Recovered/Resolved]
  - Choreoathetosis [Recovering/Resolving]
  - Hypophagia [Recovered/Resolved]
  - Disturbance in attention [Recovering/Resolving]
  - Dysphagia [Recovering/Resolving]
  - Muscle twitching [Recovering/Resolving]

NARRATIVE: CASE EVENT DATE: 20230901
